FAERS Safety Report 13641798 (Version 1)
Quarter: 2017Q2

REPORT INFORMATION
  Report Type: Spontaneous
  Country: US (occurrence: US)
  Receive Date: 20170609
  Receipt Date: 20170609
  Transmission Date: 20170830
  Serious: No
  Sender: FDA-Public Use
  Company Number: None

PATIENT
  Age: 61 Year
  Sex: Male

DRUGS (1)
  1. CYCLOSPORINE CAP 25MG MOD [Suspect]
     Active Substance: CYCLOSPORINE

REACTIONS (3)
  - Neoplasm malignant [None]
  - Lung neoplasm [None]
  - Neoplasm progression [None]

NARRATIVE: CASE EVENT DATE: 20161130
